FAERS Safety Report 4285328-0 (Version None)
Quarter: 2004Q1

REPORT INFORMATION
  Report Type: 
  Country: None (occurrence: None)
  Receive Date: 20040202
  Receipt Date: 20040120
  Transmission Date: 20041129
  Serious: Yes (Death, Life-Threatening, Hospitalization)
  Sender: FDA-Public Use
  Company Number: 2003121907

PATIENT
  Age: 71 Year
  Sex: Male
  Weight: 37.9 kg

DRUGS (4)
  1. DIFLUCAN [Suspect]
     Indication: FUNGAEMIA
     Dosage: 200 MG (DAILY), INTRAVENOUS
     Route: 042
     Dates: start: 20031007, end: 20031029
  2. LANSOPRAZOLE [Suspect]
     Indication: GASTRIC ULCER
     Dosage: 15 MG (DAILY), ORAL
     Route: 048
     Dates: start: 20031007, end: 20031104
  3. PIPERACILLIN SODIUM [Suspect]
     Indication: URINARY TRACT INFECTION
     Dosage: 2 GRAM (BID), INTRAVENOUS
     Route: 042
     Dates: start: 20030926, end: 20031009
  4. TPN [Concomitant]

REACTIONS (4)
  - BLOOD ALKALINE PHOSPHATASE ABNORMAL [None]
  - METHICILLIN-RESISTANT STAPHYLOCOCCAL AUREUS TEST POSITIVE [None]
  - SPUTUM CULTURE POSITIVE [None]
  - URINARY TRACT INFECTION [None]
